FAERS Safety Report 8154995-3 (Version None)
Quarter: 2012Q1

REPORT INFORMATION
  Report Type: 
  Country: None (occurrence: None)
  Receive Date: 20120221
  Receipt Date: 20120216
  Transmission Date: 20120608
  Serious: Yes (Hospitalization)
  Sender: FDA-Public Use
  Company Number: PHEH2012US003954

PATIENT
  Age: 59 Year
  Sex: Female

DRUGS (6)
  1. LOSARTAN POTASSIUM [Suspect]
  2. HYDROCHLOROTHIAZIDE [Concomitant]
  3. NEBULIZER [Concomitant]
  4. ADVAIR DISKUS 100/50 [Concomitant]
  5. DIOVAN [Suspect]
     Dosage: 320 MG, QD
  6. XANAX [Concomitant]
     Indication: ANXIETY

REACTIONS (3)
  - DIZZINESS [None]
  - HYPERTENSION [None]
  - ABASIA [None]
